FAERS Safety Report 4381555-2 (Version None)
Quarter: 2004Q2

REPORT INFORMATION
  Report Type: 
  Country: None (occurrence: None)
  Receive Date: 20040621
  Receipt Date: 20040219
  Transmission Date: 20050107
  Serious: Yes (Life-Threatening, Hospitalization, Disabling)
  Sender: FDA-Public Use
  Company Number: US-MERCK-0402USA01450

PATIENT
  Age: 37 Year
  Sex: Female
  Weight: 76 kg

DRUGS (12)
  1. MIDRIN [Concomitant]
     Route: 065
     Dates: start: 20010301
  2. TRICOR [Concomitant]
     Route: 065
  3. NEURONTIN [Concomitant]
     Route: 065
     Dates: start: 20000101
  4. HYDROCHLOROTHIAZIDE [Concomitant]
     Route: 065
  5. MAXZIDE [Concomitant]
     Route: 065
  6. HYDROCODONE HYDROCHLORIDE [Concomitant]
     Route: 065
     Dates: start: 20010301
  7. ATIVAN [Concomitant]
     Route: 065
     Dates: start: 20000101, end: 20010101
  8. REMERON [Concomitant]
     Route: 065
     Dates: start: 20000101
  9. VIOXX [Suspect]
     Indication: ARTHRITIS
     Route: 048
     Dates: start: 20010301, end: 20021001
  10. VIOXX [Suspect]
     Indication: OSTEOARTHRITIS
     Route: 048
     Dates: start: 20010301, end: 20021001
  11. ZANAFLEX [Concomitant]
     Route: 065
  12. TRAZODONE HYDROCHLORIDE [Concomitant]
     Route: 065
     Dates: start: 20000101

REACTIONS (11)
  - ABDOMINAL PAIN [None]
  - ANXIETY [None]
  - BIPOLAR DISORDER [None]
  - BLOOD CHOLESTEROL INCREASED [None]
  - BLOOD TRIGLYCERIDES INCREASED [None]
  - EMOTIONAL DISTRESS [None]
  - HYPERTENSION [None]
  - OEDEMA PERIPHERAL [None]
  - RENAL FAILURE [None]
  - TIBIA FRACTURE [None]
  - UTERINE DISORDER [None]
